FAERS Safety Report 12800010 (Version 1)
Quarter: 2016Q3

REPORT INFORMATION
  Report Type: Spontaneous
  Country: MX (occurrence: MX)
  Receive Date: 20160930
  Receipt Date: 20160930
  Transmission Date: 20161109
  Serious: Yes (Other)
  Sender: FDA-Public Use
  Company Number: MX-BRISTOL-MYERS SQUIBB COMPANY-BMS-2016-078429

PATIENT
  Sex: Male

DRUGS (4)
  1. DAKLINZA [Suspect]
     Active Substance: DACLATASVIR
     Indication: HEPATITIS C
     Route: 065
  2. DAKLINZA [Suspect]
     Active Substance: DACLATASVIR
     Indication: HEPATIC CIRRHOSIS
  3. SOFOSBUVIR [Suspect]
     Active Substance: SOFOSBUVIR
     Indication: HEPATITIS C
     Route: 065
  4. SOFOSBUVIR [Suspect]
     Active Substance: SOFOSBUVIR
     Indication: HEPATIC CIRRHOSIS

REACTIONS (8)
  - Abnormal behaviour [Unknown]
  - Somnolence [Unknown]
  - Decreased appetite [Unknown]
  - Aggression [Unknown]
  - Asthenia [Unknown]
  - Disorientation [Unknown]
  - Jaundice [Unknown]
  - Mucosal dryness [Unknown]
